FAERS Safety Report 6991963-9 (Version None)
Quarter: 2010Q3

REPORT INFORMATION
  Report Type: 
  Country: None (occurrence: None)
  Receive Date: 20100917
  Receipt Date: 20100908
  Transmission Date: 20110219
  Serious: Yes (Hospitalization)
  Sender: FDA-Public Use
  Company Number: US-US-EMD SERONO, INC.-7010216

PATIENT
  Sex: Female

DRUGS (2)
  1. REBIF [Suspect]
     Indication: MULTIPLE SCLEROSIS
     Route: 058
     Dates: start: 20100101
  2. UNSPECIFIED MEDICATION [Concomitant]

REACTIONS (6)
  - CLOSTRIDIAL INFECTION [None]
  - INTESTINAL OBSTRUCTION [None]
  - MULTIPLE SCLEROSIS RELAPSE [None]
  - SEPSIS [None]
  - SOMNOLENCE [None]
  - URINARY TRACT INFECTION [None]
